FAERS Safety Report 23421793 (Version 1)
Quarter: 2024Q1

REPORT INFORMATION
  Report Type: Spontaneous
  Country: CA (occurrence: CA)
  Receive Date: 20240119
  Receipt Date: 20240119
  Transmission Date: 20240410
  Serious: Yes (Death, Hospitalization, Other)
  Sender: FDA-Public Use
  Company Number: CA-BAXTER-2023BAX039285

PATIENT
  Age: 54 Year
  Sex: Male

DRUGS (23)
  1. EXTRANEAL [Suspect]
     Active Substance: CALCIUM CHLORIDE\ICODEXTRIN\MAGNESIUM CHLORIDE\SODIUM CHLORIDE\SODIUM LACTATE
     Dosage: OVERNIGHT, SINGLE EXCHANGE (DAY DRY)
     Route: 033
  2. FUROSEMIDE [Concomitant]
     Active Substance: FUROSEMIDE
     Dosage: 40 MG DAILY
     Route: 048
  3. ALLOPURINOL [Concomitant]
     Active Substance: ALLOPURINOL
     Dosage: 100 MG DAILY, 1 TAB, Q DINNER
     Route: 048
  4. AMLODIPINE [Concomitant]
     Active Substance: AMLODIPINE BESYLATE
     Dosage: 7.5 MG DAILY
     Route: 048
  5. AMLODIPINE [Concomitant]
     Active Substance: AMLODIPINE BESYLATE
     Dosage: 2.5 MG DAILY
     Route: 048
  6. ATENOLOL [Concomitant]
     Active Substance: ATENOLOL
     Dosage: 25 MG DAILY
     Route: 048
  7. CALCITRIOL [Concomitant]
     Active Substance: CALCITRIOL
     Dosage: 0.25 MCG TWICE WEEKLY (MON AND THURS)
     Route: 048
  8. CALCITRIOL [Concomitant]
     Active Substance: CALCITRIOL
     Dosage: 0.25 MCG ONCE WEEKLY
     Route: 048
  9. CALCIUM CARBONATE [Concomitant]
     Active Substance: CALCIUM CARBONATE
     Dosage: 1250 MG, 3 TIMES DAILY (TID) CC WITH MEALS
     Route: 048
  10. VITAMIN D [Concomitant]
     Active Substance: VITAMIN D NOS
     Dosage: 2000 IU DAILY (SOFT GEL CAPSULE)
     Route: 048
  11. ARANESP [Concomitant]
     Active Substance: DARBEPOETIN ALFA
     Dosage: 60 MCG WEEKLY
     Route: 065
  12. FERROUS FUMARATE [Concomitant]
     Active Substance: FERROUS FUMARATE
     Dosage: 600 MG NIGHTLY, QHS
     Route: 048
  13. FERROUS FUMARATE [Concomitant]
     Active Substance: FERROUS FUMARATE
     Dosage: 300 MG QHS, (CANCELLED VENOFER INFUSIONS)
     Route: 048
  14. IRBESARTAN [Concomitant]
     Active Substance: IRBESARTAN
     Dosage: 75 MG DAILY
     Route: 048
  15. IRBESARTAN [Concomitant]
     Active Substance: IRBESARTAN
     Dosage: 150 MG DAILY
     Route: 048
  16. SYNTHROID [Concomitant]
     Active Substance: LEVOTHYROXINE SODIUM
     Dosage: 200 MCG DAILY (AN HOUR BEFORE BREAKFAST)
     Route: 048
  17. TESTOSTERONE [Concomitant]
     Active Substance: TESTOSTERONE
     Dosage: 5 G, (TD) EVERY 2 DAYS OR DAILY
     Route: 065
  18. SODIUM BICARBONATE [Concomitant]
     Active Substance: SODIUM BICARBONATE
     Dosage: 500 MG DAILY, Q DINNER
     Route: 048
  19. HYDROCORTISONE [Concomitant]
     Active Substance: HYDROCORTISONE
     Dosage: 15 MG, QAM AND 10 MG QPM
     Route: 065
  20. Replavite [Concomitant]
     Dosage: 1 TAB, Q DINNER
     Route: 048
  21. SENNA [Concomitant]
     Active Substance: SENNA LEAF\SENNOSIDES\SENNOSIDES A AND B
     Dosage: 2 TABS QHS
     Route: 048
  22. MUPIROCIN [Concomitant]
     Active Substance: MUPIROCIN
     Dosage: 1 APP, TOP, DAILY
     Route: 061
  23. PREDNISONE [Concomitant]
     Active Substance: PREDNISONE
     Indication: Immunisation
     Dosage: LESS THAN 20 MG/DAY

REACTIONS (18)
  - Death [Fatal]
  - Sputum purulent [Unknown]
  - Productive cough [Unknown]
  - Bronchiectasis [Unknown]
  - Bronchopulmonary aspergillosis allergic [Unknown]
  - Pneumonia [Recovering/Resolving]
  - Dyspnoea [Unknown]
  - Fatigue [Unknown]
  - Mucosal disorder [Unknown]
  - Overgrowth bacterial [Unknown]
  - Peritoneal dialysis complication [Unknown]
  - Catheter site discharge [Unknown]
  - Blood calcium increased [Unknown]
  - Weight decreased [Unknown]
  - Decreased appetite [Unknown]
  - Anaemia [Unknown]
  - Blood pressure decreased [Unknown]
  - Infection [Recovering/Resolving]

NARRATIVE: CASE EVENT DATE: 20231212
